FAERS Safety Report 8838431 (Version 1)
Quarter: 2012Q4

REPORT INFORMATION
  Report Type: 
  Country: CA (occurrence: CA)
  Receive Date: 20121012
  Receipt Date: 20121012
  Transmission Date: 20130627
  Serious: Yes (Death, Other)
  Sender: FDA-Public Use
  Company Number: PHHY2012CA089648

PATIENT
  Age: 23 Year
  Sex: Female
  Weight: 47 kg

DRUGS (3)
  1. VALPROIC ACID [Suspect]
     Indication: IRRITABILITY
  2. PAROXETINE [Suspect]
     Indication: IRRITABILITY
  3. RISPERIDONE [Concomitant]
     Indication: MOOD SWINGS

REACTIONS (6)
  - Renal failure acute [Fatal]
  - Dehydration [Fatal]
  - Renal cyst [Unknown]
  - Dysphagia [Unknown]
  - Nervous system disorder [Unknown]
  - Drug ineffective [Unknown]
